FAERS Safety Report 13461596 (Version 2)
Quarter: 2017Q2

REPORT INFORMATION
  Report Type: Spontaneous
  Country: BR (occurrence: BR)
  Receive Date: 20170420
  Receipt Date: 20170421
  Transmission Date: 20170830
  Serious: Yes (Other)
  Sender: FDA-Public Use
  Company Number: BR-JNJFOC-20170415316

PATIENT
  Sex: Male

DRUGS (4)
  1. RISPERDAL [Suspect]
     Active Substance: RISPERIDONE
     Indication: PSYCHOTIC DISORDER
     Route: 065
  2. SERTRALINE [Concomitant]
     Active Substance: SERTRALINE HYDROCHLORIDE
     Route: 065
  3. PHENAZEPAM [Concomitant]
     Active Substance: PHENAZEPAM
     Route: 065
  4. RISPERDAL [Suspect]
     Active Substance: RISPERIDONE
     Indication: PSYCHOTIC DISORDER
     Route: 065
     Dates: start: 2010

REACTIONS (5)
  - Communication disorder [Not Recovered/Not Resolved]
  - Adverse drug reaction [Unknown]
  - Hypersensitivity [Not Recovered/Not Resolved]
  - Schizophrenia [Not Recovered/Not Resolved]
  - Fatigue [Not Recovered/Not Resolved]
